FAERS Safety Report 6078755-2 (Version None)
Quarter: 2009Q1

REPORT INFORMATION
  Report Type: 
  Country: None (occurrence: None)
  Receive Date: 20090216
  Receipt Date: 20090212
  Transmission Date: 20090719
  Serious: Yes (Death, Life-Threatening, Hospitalization)
  Sender: FDA-Public Use
  Company Number: CH-ASTRAZENECA-2009PK00577

PATIENT
  Age: 65 Year
  Sex: Female
  Weight: 90 kg

DRUGS (5)
  1. SEROQUEL [Suspect]
     Route: 048
     Dates: end: 20080923
  2. LAMICTAL [Suspect]
     Route: 048
     Dates: end: 20080923
  3. DEPAKENE [Suspect]
     Route: 048
     Dates: end: 20080923
  4. ELTROXIN [Suspect]
     Route: 048
     Dates: end: 20080923
  5. TORASIS [Suspect]
     Route: 048

REACTIONS (1)
  - DEATH [None]
